FAERS Safety Report 15671254 (Version 1)
Quarter: 2018Q4

REPORT INFORMATION
  Report Type: Spontaneous
  Country: US (occurrence: US)
  Receive Date: 20181129
  Receipt Date: 20181129
  Transmission Date: 20190205
  Serious: No
  Sender: FDA-Public Use
  Company Number: US-TESARO-US-2018TSO04097

PATIENT
  Sex: Female

DRUGS (2)
  1. ZEJULA [Suspect]
     Active Substance: NIRAPARIB
     Indication: PRODUCT USED FOR UNKNOWN INDICATION
     Dosage: 300 MG, QD
     Route: 065
  2. ZEJULA [Suspect]
     Active Substance: NIRAPARIB
     Dosage: 200 MG, QD
     Route: 065

REACTIONS (17)
  - Contusion [Unknown]
  - Haematocrit decreased [Unknown]
  - White blood cell count decreased [Unknown]
  - Asthenia [Unknown]
  - Blood count abnormal [Unknown]
  - Lymphocyte count decreased [Unknown]
  - Mean cell haemoglobin increased [Unknown]
  - Blood pressure increased [Unknown]
  - Haemoglobin decreased [Unknown]
  - Insomnia [Unknown]
  - Feeling abnormal [Unknown]
  - Vision blurred [Unknown]
  - Cough [Unknown]
  - Confusional state [Unknown]
  - Red cell distribution width increased [Unknown]
  - Red blood cell count decreased [Unknown]
  - Mean cell volume increased [Unknown]
